FAERS Safety Report 23341803 (Version 1)
Quarter: 2023Q4

REPORT INFORMATION
  Report Type: Spontaneous
  Country: US (occurrence: US)
  Receive Date: 20231227
  Receipt Date: 20231227
  Transmission Date: 20240109
  Serious: No
  Sender: FDA-Public Use
  Company Number: US-SANDOZ-SDZ2023US071946

PATIENT
  Sex: Female

DRUGS (1)
  1. RECLAST [Suspect]
     Active Substance: ZOLEDRONIC ACID
     Indication: Product used for unknown indication
     Dosage: 5 MG, FREQ=1X ROUTE=INFUSION, 5MG/100ML
     Route: 065
     Dates: start: 20231117, end: 20231117

REACTIONS (2)
  - Arthralgia [Unknown]
  - Inflammatory marker increased [Unknown]
